FAERS Safety Report 9551360 (Version 1)
Quarter: 2013Q3

REPORT INFORMATION
  Report Type: Spontaneous
  Country: US (occurrence: None)
  Receive Date: 20130724
  Receipt Date: 20130724
  Transmission Date: 20140515
  Serious: Yes (Other)
  Sender: FDA-Public Use
  Company Number: PHEH2012US017579

PATIENT
  Sex: Female
  Weight: 89 kg

DRUGS (1)
  1. GLEEVEC (IMATINIB) TABLET, 400 MG [Suspect]
     Dosage: 1 DF. EVERY DAY, ORAL
     Route: 048

REACTIONS (3)
  - Anaemia [None]
  - Fatigue [None]
  - Hair texture abnormal [None]
